FAERS Safety Report 22266815 (Version 1)
Quarter: 2023Q2

REPORT INFORMATION
  Report Type: Spontaneous
  Country: US (occurrence: None)
  Receive Date: 20230427
  Receipt Date: 20230427
  Transmission Date: 20230722
  Serious: Yes (Other)
  Sender: FDA-Public Use
  Company Number: None

PATIENT
  Sex: Female

DRUGS (8)
  1. BENLYSTA [Suspect]
     Active Substance: BELIMUMAB
     Indication: Systemic lupus erythematosus
  2. FOLIC ACID [Concomitant]
     Active Substance: FOLIC ACID
  3. LOSARTAN POT TAB [Concomitant]
  4. METFORMIN TAB [Concomitant]
  5. OZEMPIC [Concomitant]
     Active Substance: SEMAGLUTIDE
  6. PAQUENIL TAB [Concomitant]
  7. RELAFEN TAB [Concomitant]
  8. TRAZODONE TAB [Concomitant]

REACTIONS (5)
  - Arthralgia [None]
  - Rash [None]
  - Fatigue [None]
  - Tympanoplasty [None]
  - Feeling abnormal [None]
